FAERS Safety Report 5586336-X (Version None)
Quarter: 2008Q1

REPORT INFORMATION
  Report Type: 
  Country: None (occurrence: None)
  Receive Date: 20080107
  Receipt Date: 20080107
  Transmission Date: 20080703
  Serious: Yes (Life-Threatening, Hospitalization, Disabling, Other)
  Sender: FDA-Public Use
  Company Number: None

PATIENT
  Age: 57 Year
  Sex: Female
  Weight: 63.5036 kg

DRUGS (1)
  1. ONE A DAY WEIGHT SMART ADVANCED BAYER [Suspect]
     Indication: VITAMIN SUPPLEMENTATION
     Dosage: ONE PER DAY
     Dates: start: 20070915, end: 20071228

REACTIONS (2)
  - JUGULAR VEIN THROMBOSIS [None]
  - OVERDOSE [None]
